FAERS Safety Report 24631995 (Version 1)
Quarter: 2024Q4

REPORT INFORMATION
  Report Type: Spontaneous
  Country: US (occurrence: None)
  Receive Date: 20241118
  Receipt Date: 20241118
  Transmission Date: 20250115
  Serious: Yes (Other)
  Sender: Public
  Company Number: None

PATIENT
  Age: 72 Year
  Sex: Male
  Weight: 103.5 kg

DRUGS (8)
  1. LEQVIO [Suspect]
     Active Substance: INCLISIRAN SODIUM
     Indication: Low density lipoprotein increased
     Dosage: 1 INJ OF LEQVIO SUBCUTANEOUS?
     Route: 058
     Dates: start: 20231127, end: 20231128
  2. METHOTREXATE [Suspect]
     Active Substance: METHOTREXATE
  3. XARELTO [Concomitant]
     Active Substance: RIVAROXABAN
  4. LEFLUNOMIDE [Concomitant]
     Active Substance: LEFLUNOMIDE
  5. NALTREXONE [Concomitant]
     Active Substance: NALTREXONE
  6. ALLEGRA [Concomitant]
     Active Substance: FEXOFENADINE HYDROCHLORIDE
  7. mozyme [Concomitant]
  8. UBIQUINOL [Concomitant]
     Active Substance: UBIQUINOL

REACTIONS (2)
  - Loss of libido [None]
  - Erectile dysfunction [None]

NARRATIVE: CASE EVENT DATE: 20240115
